FAERS Safety Report 11390819 (Version 2)
Quarter: 2015Q3

REPORT INFORMATION
  Report Type: Report from Study
  Country: AU (occurrence: AU)
  Receive Date: 20150818
  Receipt Date: 20150924
  Transmission Date: 20151125
  Serious: Yes (Other)
  Sender: FDA-Public Use
  Company Number: PHHY2015AU077775

PATIENT
  Age: 32 Year
  Sex: Male

DRUGS (2)
  1. CLOZARIL [Suspect]
     Active Substance: CLOZAPINE
     Indication: SCHIZOPHRENIA
     Dosage: 500 MG
     Route: 048
     Dates: start: 20060308
  2. PROPRANOLOL [Concomitant]
     Active Substance: PROPRANOLOL\PROPRANOLOL HYDROCHLORIDE
     Indication: TACHYCARDIA
     Route: 048

REACTIONS (10)
  - Seizure [Not Recovered/Not Resolved]
  - Tachycardia [Not Recovered/Not Resolved]
  - Crying [Recovered/Resolved]
  - Screaming [Recovered/Resolved]
  - Salivary hypersecretion [Unknown]
  - Lymphocyte count increased [Unknown]
  - Middle insomnia [Recovered/Resolved]
  - Blood sodium increased [Unknown]
  - Nocturnal fear [Recovered/Resolved]
  - Loss of consciousness [Recovered/Resolved]

NARRATIVE: CASE EVENT DATE: 2008
